FAERS Safety Report 10766309 (Version 1)
Quarter: 2015Q1

REPORT INFORMATION
  Report Type: Spontaneous
  Country: US (occurrence: US)
  Receive Date: 20150205
  Receipt Date: 20150205
  Transmission Date: 20150721
  Serious: No
  Sender: FDA-Public Use
  Company Number: US-ELI_LILLY_AND_COMPANY-US201501006371

PATIENT
  Age: 68 Year
  Sex: Female

DRUGS (3)
  1. STARLIX [Concomitant]
     Active Substance: NATEGLINIDE
     Route: 065
  2. METFORMIN [Concomitant]
     Active Substance: METFORMIN HYDROCHLORIDE
     Route: 065
  3. HUMALOG [Suspect]
     Active Substance: INSULIN LISPRO
     Indication: TYPE 2 DIABETES MELLITUS
     Dosage: UNK, BID
     Route: 065
     Dates: start: 201409, end: 201410

REACTIONS (3)
  - Psychomotor hyperactivity [Unknown]
  - Hyperhidrosis [Unknown]
  - Visual impairment [Unknown]

NARRATIVE: CASE EVENT DATE: 201409
